FAERS Safety Report 22522277 (Version 1)
Quarter: 2023Q2

REPORT INFORMATION
  Report Type: Spontaneous
  Country: KR (occurrence: KR)
  Receive Date: 20230605
  Receipt Date: 20230605
  Transmission Date: 20230722
  Serious: Yes (Hospitalization)
  Sender: FDA-Public Use
  Company Number: KR-ORGANON-O2305KOR003192

PATIENT
  Age: 74 Year
  Sex: Male
  Weight: 80 kg

DRUGS (6)
  1. COZAAR [Suspect]
     Active Substance: LOSARTAN POTASSIUM
     Indication: Essential hypertension
     Dosage: 25 MILLIGRAM, QD
     Route: 048
     Dates: start: 20170913
  2. ASPIRIN [Concomitant]
     Active Substance: ASPIRIN
     Indication: Cerebrovascular accident
     Dosage: 300 MILLIGRAM, QD
     Route: 048
     Dates: start: 20170618, end: 20170622
  3. FUROSEMIDE [Concomitant]
     Active Substance: FUROSEMIDE
     Indication: Essential hypertension
     Dosage: 20 MILLIGRAM, QD
     Route: 048
     Dates: start: 20170913
  4. ATORVASTATIN CALCIUM [Concomitant]
     Active Substance: ATORVASTATIN CALCIUM
     Indication: Prophylaxis
     Dosage: 20 MILLIGRAM, QD
     Route: 048
     Dates: start: 20170913
  5. OXIRACETAM [Concomitant]
     Active Substance: OXIRACETAM
     Indication: Cerebrovascular accident
     Dosage: 800 MILLIGRAM, BID
     Route: 048
     Dates: start: 20170913
  6. OXIRACETAM [Concomitant]
     Active Substance: OXIRACETAM
     Indication: Cognitive disorder
     Dosage: 800 MILLIGRAM, BID
     Route: 048
     Dates: start: 20171115, end: 201803

REACTIONS (1)
  - Nephrolithiasis [Recovered/Resolved]

NARRATIVE: CASE EVENT DATE: 20171101
